FAERS Safety Report 26019837 (Version 1)
Quarter: 2025Q4

REPORT INFORMATION
  Report Type: Spontaneous
  Country: US (occurrence: US)
  Receive Date: 20251110
  Receipt Date: 20251110
  Transmission Date: 20260118
  Serious: No
  Sender: GALPHARM INTERNATIONAL
  Company Number: US-PERRIGO-24US011353

PATIENT
  Age: 81 Year
  Sex: Female
  Weight: 44.898 kg

DRUGS (6)
  1. POLYETHYLENE GLYCOL 3350 [Suspect]
     Active Substance: POLYETHYLENE GLYCOL 3350
     Indication: Constipation
     Dosage: UNKNOWN, QD
     Route: 048
     Dates: start: 20240925, end: 20241001
  2. POLYETHYLENE GLYCOL 3350 [Suspect]
     Active Substance: POLYETHYLENE GLYCOL 3350
     Dosage: UNKNOWN, QD
     Route: 048
     Dates: start: 20241020, end: 20241022
  3. POLYETHYLENE GLYCOL 3350 [Suspect]
     Active Substance: POLYETHYLENE GLYCOL 3350
     Dosage: UNKNOWN, QD
     Route: 048
     Dates: start: 20241024, end: 20241027
  4. COLACE [Suspect]
     Active Substance: DOCUSATE SODIUM
     Indication: Constipation
     Dosage: 100 MG, QD
     Route: 048
     Dates: start: 20240925, end: 20241001
  5. COLACE [Suspect]
     Active Substance: DOCUSATE SODIUM
     Dosage: 100 MG, QD
     Route: 048
     Dates: start: 20241020, end: 20241027
  6. LOSARTAN [Concomitant]
     Active Substance: LOSARTAN
     Indication: Hypertension
     Dosage: UNKNOWN, UNKNOWN
     Route: 065
     Dates: start: 2021

REACTIONS (2)
  - Diarrhoea [Not Recovered/Not Resolved]
  - Frequent bowel movements [Not Recovered/Not Resolved]

NARRATIVE: CASE EVENT DATE: 20241001
